FAERS Safety Report 18268493 (Version 1)
Quarter: 2020Q3

REPORT INFORMATION
  Report Type: Spontaneous
  Country: ZA (occurrence: ZA)
  Receive Date: 20200915
  Receipt Date: 20200915
  Transmission Date: 20201103
  Serious: Yes (Life-Threatening)
  Sender: FDA-Public Use
  Company Number: ZA-SA-2020SA248044

PATIENT

DRUGS (7)
  1. EFAVIRENZ. [Interacting]
     Active Substance: EFAVIRENZ
     Indication: HIV TEST POSITIVE
     Dosage: 600 MG, HS
  2. CIPROFLOXACIN. [Interacting]
     Active Substance: CIPROFLOXACIN
     Indication: EVIDENCE BASED TREATMENT
     Dosage: UNK
  3. STAVUDINE. [Concomitant]
     Active Substance: STAVUDINE
     Indication: HIV TEST POSITIVE
     Dosage: 30 MG, BID
  4. RIFAMPICIN [Suspect]
     Active Substance: RIFAMPIN
     Indication: DISSEMINATED TUBERCULOSIS
     Dosage: 600 MG, QD
  5. LAMIVUDINE. [Concomitant]
     Active Substance: LAMIVUDINE
     Indication: HIV TEST POSITIVE
     Dosage: 150 MG, BID
  6. WARFARIN SODIUM. [Interacting]
     Active Substance: WARFARIN SODIUM
     Indication: DEEP VEIN THROMBOSIS
     Dosage: 10 MG, QD
  7. ISONIAZID. [Concomitant]
     Active Substance: ISONIAZID
     Indication: DISSEMINATED TUBERCULOSIS
     Dosage: 300 MG, QD

REACTIONS (5)
  - Flank pain [Recovered/Resolved]
  - Haematuria [Recovered/Resolved]
  - Pallor [Recovered/Resolved]
  - Drug interaction [Recovered/Resolved]
  - Abdominal pain lower [Recovered/Resolved]
